FAERS Safety Report 4963384-1 (Version None)
Quarter: 2006Q2

REPORT INFORMATION
  Report Type: 
  Country: None (occurrence: None)
  Receive Date: 20060404
  Receipt Date: 20060404
  Transmission Date: 20061013
  Serious: Yes (Hospitalization)
  Sender: FDA-Public Use
  Company Number: None

PATIENT
  Age: 94 Year
  Sex: Male
  Weight: 87 kg

DRUGS (1)
  1. WARFARIN SODIUM [Suspect]
     Dosage: 7 MG PO QD
     Route: 048

REACTIONS (5)
  - COUGH [None]
  - DECREASED APPETITE [None]
  - FEELING ABNORMAL [None]
  - HAEMATOCHEZIA [None]
  - SPUTUM DISCOLOURED [None]
